FAERS Safety Report 7903870-5 (Version None)
Quarter: 2011Q4

REPORT INFORMATION
  Report Type: 
  Country: None (occurrence: None)
  Receive Date: 20111109
  Receipt Date: 20111027
  Transmission Date: 20120403
  Serious: Yes (Other)
  Sender: FDA-Public Use
  Company Number: US-ASTRAZENECA-2011SE65309

PATIENT
  Age: 52 Year
  Sex: Female

DRUGS (1)
  1. ATACAND HCT [Suspect]
     Route: 048

REACTIONS (1)
  - BLINDNESS [None]
